FAERS Safety Report 19040701 (Version 3)
Quarter: 2023Q1

REPORT INFORMATION
  Report Type: Report from Study
  Country: US (occurrence: None)
  Receive Date: 20210322
  Receipt Date: 20230309
  Transmission Date: 20230418
  Serious: Yes (Hospitalization)
  Sender: FDA-Public Use
  Company Number: US-ROCHE-2782926

PATIENT
  Age: 64 Year
  Sex: Male

DRUGS (3)
  1. ATEZOLIZUMAB [Suspect]
     Active Substance: ATEZOLIZUMAB
     Indication: Transitional cell carcinoma
     Dosage: LAST DOSE ADMISTERED ON 30/JUL/2020
     Route: 041
  2. ATEZOLIZUMAB [Suspect]
     Active Substance: ATEZOLIZUMAB
     Route: 041
  3. INTERLEUKIN-7 HUMAN RECOMBINANT [Suspect]
     Active Substance: INTERLEUKIN-7 HUMAN RECOMBINANT
     Indication: Transitional cell carcinoma
     Dosage: LAST DOSE ADMINISTERED ON 13/AUG2020
     Route: 065
     Dates: start: 20200723

REACTIONS (2)
  - Blood creatinine increased [Unknown]
  - Hypercalcaemia [Unknown]

NARRATIVE: CASE EVENT DATE: 20200820
